FAERS Safety Report 6536710-X (Version None)
Quarter: 2010Q1

REPORT INFORMATION
  Report Type: 
  Country: None (occurrence: None)
  Receive Date: 20100105
  Receipt Date: 20091222
  Transmission Date: 20100710
  Serious: Yes (Hospitalization)
  Sender: FDA-Public Use
  Company Number: 2009301083

PATIENT
  Age: 58 Year
  Sex: Male

DRUGS (4)
  1. DALTEPARIN SODIUM [Suspect]
     Indication: LUNG NEOPLASM MALIGNANT
     Dosage: UNK
     Dates: start: 20090421, end: 20090526
  2. GABAPENTIN [Suspect]
     Dosage: 1800 MG, DAILY, ORAL
     Route: 048
  3. PRILOSEC [Concomitant]
  4. OXYCONTIN [Concomitant]

REACTIONS (6)
  - CHILLS [None]
  - CONFUSIONAL STATE [None]
  - FEBRILE NEUTROPENIA [None]
  - LOWER RESPIRATORY TRACT INFECTION [None]
  - RENAL FAILURE ACUTE [None]
  - VOMITING [None]
